FAERS Safety Report 21043905 (Version 1)
Quarter: 2022Q3

REPORT INFORMATION
  Report Type: Spontaneous
  Country: US (occurrence: None)
  Receive Date: 20220702
  Receipt Date: 20220702
  Transmission Date: 20221027
  Serious: Yes (Other)
  Sender: FDA-Public Use
  Company Number: None

PATIENT
  Age: 42 Year
  Sex: Female
  Weight: 99 kg

DRUGS (7)
  1. OZEMPIC [Suspect]
     Active Substance: SEMAGLUTIDE
     Indication: Diabetes mellitus
     Dosage: OTHER QUANTITY : 0.25 INJECTION(S);?OTHER FREQUENCY : ONE SHOT WEEKLY;?OTHER ROUTE : INJECTION INTO
     Route: 050
     Dates: start: 20220607, end: 20220628
  2. OZEMPIC [Suspect]
     Active Substance: SEMAGLUTIDE
     Indication: Weight loss diet
  3. METFORMIN [Concomitant]
     Active Substance: METFORMIN HYDROCHLORIDE
  4. FENOFIBRATE [Concomitant]
     Active Substance: FENOFIBRATE
  5. OMEPRAZOLE [Concomitant]
     Active Substance: OMEPRAZOLE
  6. HYDROCHLOROTHIAZIDE [Concomitant]
     Active Substance: HYDROCHLOROTHIAZIDE
  7. LISINOPRIL [Concomitant]
     Active Substance: LISINOPRIL

REACTIONS (8)
  - Vomiting [None]
  - Diarrhoea [None]
  - Dehydration [None]
  - Abdominal distension [None]
  - Abdominal pain upper [None]
  - Self-injurious ideation [None]
  - Therapeutic product effect incomplete [None]
  - Blood glucose increased [None]

NARRATIVE: CASE EVENT DATE: 20220701
